FAERS Safety Report 8816698 (Version 1)
Quarter: 2012Q4

REPORT INFORMATION
  Report Type: Spontaneous
  Country: US (occurrence: None)
  Receive Date: 20120928
  Receipt Date: 20120928
  Transmission Date: 20130627
  Serious: Yes (Death, Hospitalization)
  Sender: FDA-Public Use
  Company Number: 139559

PATIENT
  Age: 6 Year
  Sex: Female

DRUGS (1)
  1. ADRIAMYCIN [Suspect]
     Indication: PRECURSOR B-LYMPHOBLASTIC LYMPHOMA/LEUKEMIA

REACTIONS (4)
  - Erythroleukaemia [None]
  - Cardiac disorder [None]
  - Respiratory disorder [None]
  - Disease complication [None]
